FAERS Safety Report 9986936 (Version 1)
Quarter: 2014Q1

REPORT INFORMATION
  Report Type: Spontaneous
  Country: CA (occurrence: CA)
  Receive Date: 20140307
  Receipt Date: 20140307
  Transmission Date: 20141002
  Serious: Yes (Other)
  Sender: FDA-Public Use
  Company Number: PHHY2014CA028237

PATIENT
  Sex: Female

DRUGS (1)
  1. MIACALCIN [Suspect]
     Dosage: UNK UKN, UNK
     Route: 045

REACTIONS (7)
  - Osteoporosis [Unknown]
  - Spinal fracture [Unknown]
  - Depression [Unknown]
  - Peripheral coldness [Unknown]
  - Limb injury [Unknown]
  - Mass [Unknown]
  - Tremor [Unknown]
